FAERS Safety Report 15939116 (Version 3)
Quarter: 2019Q2

REPORT INFORMATION
  Report Type: Spontaneous
  Country: US (occurrence: US)
  Receive Date: 20190208
  Receipt Date: 20190412
  Transmission Date: 20190711
  Serious: Yes (Other)
  Sender: FDA-Public Use
  Company Number: US-ASTRAZENECA-2018SF14027

PATIENT
  Sex: Male
  Weight: 133.4 kg

DRUGS (29)
  1. PRILOSEC [Suspect]
     Active Substance: OMEPRAZOLE MAGNESIUM
     Dosage: OMEPRAZOLE
     Route: 048
     Dates: start: 20100419
  2. PANTOPRAZOLE [Suspect]
     Active Substance: PANTOPRAZOLE
     Route: 065
     Dates: start: 20130314, end: 20130405
  3. ADVAIR HFA [Concomitant]
     Active Substance: FLUTICASONE PROPIONATE\SALMETEROL XINAFOATE
  4. METOPROLOL. [Concomitant]
     Active Substance: METOPROLOL
  5. FENTANYL. [Concomitant]
     Active Substance: FENTANYL
  6. SPIRIVA [Concomitant]
     Active Substance: TIOTROPIUM BROMIDE MONOHYDRATE
  7. DEXILANT [Suspect]
     Active Substance: DEXLANSOPRAZOLE
     Route: 065
     Dates: start: 201110, end: 201505
  8. DEXILANT [Suspect]
     Active Substance: DEXLANSOPRAZOLE
     Route: 048
     Dates: start: 20111020, end: 20150502
  9. ALPRAZOLAM. [Concomitant]
     Active Substance: ALPRAZOLAM
  10. PREDNISONE. [Concomitant]
     Active Substance: PREDNISONE
  11. LORAZEPAM. [Concomitant]
     Active Substance: LORAZEPAM
  12. PRILOSEC [Suspect]
     Active Substance: OMEPRAZOLE MAGNESIUM
     Route: 048
     Dates: start: 201110, end: 201505
  13. PRILOSEC [Suspect]
     Active Substance: OMEPRAZOLE MAGNESIUM
     Dosage: OMEPRAZOLE
     Route: 048
     Dates: start: 20090101, end: 20121231
  14. PRILOSEC OTC [Suspect]
     Active Substance: OMEPRAZOLE MAGNESIUM
     Route: 048
     Dates: start: 20090101, end: 20150502
  15. ENALAPRIL [Concomitant]
     Active Substance: ENALAPRIL
  16. CRESTOR [Concomitant]
     Active Substance: ROSUVASTATIN CALCIUM
  17. AMOXICILLIN. [Concomitant]
     Active Substance: AMOXICILLIN
  18. ALBUTEROL. [Concomitant]
     Active Substance: ALBUTEROL
  19. AZITHROMYCIN ANHYDROUS. [Concomitant]
     Active Substance: AZITHROMYCIN ANHYDROUS
  20. FUROSEMIDE. [Concomitant]
     Active Substance: FUROSEMIDE
  21. RANITIDINE. [Concomitant]
     Active Substance: RANITIDINE
     Dates: start: 20141010
  22. PANTOPRAZOLE [Concomitant]
     Active Substance: PANTOPRAZOLE
     Route: 048
     Dates: start: 20130405
  23. NITROGLYCERIN. [Concomitant]
     Active Substance: NITROGLYCERIN
  24. OXYCODONE [Concomitant]
     Active Substance: OXYCODONE
  25. SIMVASTATIN. [Concomitant]
     Active Substance: SIMVASTATIN
  26. CARVEDILOL. [Concomitant]
     Active Substance: CARVEDILOL
  27. PREVACID [Suspect]
     Active Substance: LANSOPRAZOLE
     Route: 065
  28. CHANTIX [Concomitant]
     Active Substance: VARENICLINE TARTRATE
  29. LANSOPRAZOLE. [Concomitant]
     Active Substance: LANSOPRAZOLE
     Route: 048
     Dates: start: 20130222

REACTIONS (3)
  - Renal injury [Unknown]
  - Acute kidney injury [Unknown]
  - Chronic kidney disease [Not Recovered/Not Resolved]
